FAERS Safety Report 6371554-3 (Version None)
Quarter: 2009Q3

REPORT INFORMATION
  Report Type: 
  Country: None (occurrence: None)
  Receive Date: 20090923
  Receipt Date: 20070827
  Transmission Date: 20100115
  Serious: Yes (Hospitalization)
  Sender: FDA-Public Use
  Company Number: US-ASTRAZENECA-2007UW15780

PATIENT
  Age: 475 Month
  Sex: Female
  Weight: 108.9 kg

DRUGS (22)
  1. SEROQUEL [Suspect]
     Indication: BIPOLAR DISORDER
     Dosage: 100MG-400MG DAILY
     Route: 048
     Dates: start: 20010130
  2. SEROQUEL [Suspect]
     Indication: DEPRESSION
     Dosage: 100MG-400MG DAILY
     Route: 048
     Dates: start: 20010130
  3. SEROQUEL [Suspect]
     Indication: FEELING ABNORMAL
     Dosage: 100MG-400MG DAILY
     Route: 048
     Dates: start: 20010130
  4. SEROQUEL [Suspect]
     Dosage: 100 - 400 MG
     Route: 048
     Dates: start: 20010601, end: 20030101
  5. SEROQUEL [Suspect]
     Dosage: 100 - 400 MG
     Route: 048
     Dates: start: 20010601, end: 20030101
  6. SEROQUEL [Suspect]
     Dosage: 100 - 400 MG
     Route: 048
     Dates: start: 20010601, end: 20030101
  7. RISPERDAL [Concomitant]
     Dosage: 2 - 4 MG
     Dates: start: 19960101, end: 20010101
  8. RISPERDAL [Concomitant]
     Route: 048
     Dates: start: 20000521
  9. NEURONTIN [Concomitant]
     Indication: AFFECTIVE DISORDER
     Dosage: 300MG-1800MG DAILY
     Route: 048
     Dates: start: 20020415
  10. INDERAL LA [Concomitant]
     Indication: ANXIETY
     Dosage: 80MG-120MG DAILY
     Route: 048
     Dates: start: 20020415
  11. COGENTIN [Concomitant]
     Indication: EXTRAPYRAMIDAL DISORDER
     Route: 048
     Dates: start: 20020415
  12. ESKALITH [Concomitant]
     Indication: BIPOLAR DISORDER
     Dosage: 1800MG-2100MG DAILY
     Route: 048
     Dates: start: 20010806
  13. ESKALITH [Concomitant]
     Indication: AFFECTIVE DISORDER
     Dosage: 1800MG-2100MG DAILY
     Route: 048
     Dates: start: 20010806
  14. COUMADIN [Concomitant]
     Indication: ANTICOAGULANT THERAPY
     Dates: start: 20010327
  15. PAXIL [Concomitant]
     Dosage: 40-60MG DAILY
     Route: 048
     Dates: start: 20000405
  16. KLONOPIN [Concomitant]
     Indication: PSYCHOTIC DISORDER
     Dosage: 1MG-3MG DAILY
     Route: 048
     Dates: start: 20020415
  17. EFFEXOR XR [Concomitant]
     Indication: BIPOLAR DISORDER
     Route: 048
     Dates: start: 20020415
  18. EFFEXOR XR [Concomitant]
     Indication: DEPRESSION
     Route: 048
     Dates: start: 20020415
  19. SYNTHROID [Concomitant]
     Indication: THYROID DISORDER
     Dosage: 0.05MG-0.1MG DAILY
     Route: 048
     Dates: start: 20000323
  20. TRILEPTAL [Concomitant]
     Dosage: 150MG-600MG DAILY
     Route: 048
     Dates: start: 20010806
  21. TEGRETOL-XR [Concomitant]
     Route: 048
     Dates: start: 20001216
  22. ASPIRIN [Concomitant]
     Indication: ANTICOAGULANT THERAPY
     Dates: start: 20020415

REACTIONS (1)
  - PANCREATITIS ACUTE [None]
